FAERS Safety Report 25804875 (Version 1)
Quarter: 2025Q3

REPORT INFORMATION
  Report Type: Spontaneous
  Country: US (occurrence: US)
  Receive Date: 20250916
  Receipt Date: 20250916
  Transmission Date: 20251020
  Serious: Yes (Other)
  Sender: AMGEN
  Company Number: US-AMGEN-USASP2025180311

PATIENT

DRUGS (1)
  1. BEVACIZUMAB [Suspect]
     Active Substance: BEVACIZUMAB
     Indication: Neovascular age-related macular degeneration
     Route: 065

REACTIONS (7)
  - Endophthalmitis [Unknown]
  - Iridocyclitis [Unknown]
  - Uveitis [Unknown]
  - Vitritis [Unknown]
  - Iritis [Unknown]
  - Visual acuity reduced [Unknown]
  - Off label use [Unknown]
